FAERS Safety Report 14195789 (Version 7)
Quarter: 2019Q2

REPORT INFORMATION
  Report Type: Report from Study
  Country: DE (occurrence: DE)
  Receive Date: 20171116
  Receipt Date: 20190610
  Transmission Date: 20190711
  Serious: Yes (Other)
  Sender: FDA-Public Use
  Company Number: PHHY2016DE135139

PATIENT
  Age: 78 Year
  Sex: Female

DRUGS (15)
  1. L-THYROXIN [Concomitant]
     Active Substance: LEVOTHYROXINE SODIUM
     Indication: HYPOTHYROIDISM
     Dosage: 75 MG, QD
     Route: 065
     Dates: start: 20030701
  2. THOMAPYRIN [Concomitant]
     Indication: POST HERPETIC NEURALGIA
     Dosage: 250 MG, QD
     Route: 065
     Dates: start: 20160919
  3. CABERGOLINE. [Concomitant]
     Active Substance: CABERGOLINE
     Indication: POST HERPETIC NEURALGIA
     Dosage: 0.5 MG, Q2W
     Route: 065
  4. EXJADE [Suspect]
     Active Substance: DEFERASIROX
     Dosage: 360 MG, BID (1-0-1)
     Route: 048
     Dates: start: 20180116
  5. CABERGOLINE. [Concomitant]
     Active Substance: CABERGOLINE
     Dosage: 0.5 MG, QW
     Route: 065
     Dates: start: 20171228
  6. JAKAVI [Suspect]
     Active Substance: RUXOLITINIB
     Indication: PRIMARY MYELOFIBROSIS
     Dosage: 20 MG, QD
     Route: 048
     Dates: start: 20160420
  7. HYDROCORTISONE. [Concomitant]
     Active Substance: HYDROCORTISONE
     Dosage: 30 MG, QD
     Dates: start: 20190305
  8. PANTOPRAZOLE [Concomitant]
     Active Substance: PANTOPRAZOLE
     Indication: PROPHYLAXIS
     Dosage: 40 MG, QD
     Route: 065
  9. ACICLOSTAD [Concomitant]
     Indication: POST HERPETIC NEURALGIA
     Dosage: 800 MG, QD
     Route: 065
     Dates: start: 20150629, end: 20161024
  10. DILTIAZEM. [Concomitant]
     Active Substance: DILTIAZEM
     Indication: HYPERTENSION
     Dosage: 240 MG, QD
     Route: 065
  11. LISINOPRIL. [Concomitant]
     Active Substance: LISINOPRIL
     Indication: HYPERTENSION
     Dosage: 20 MG, QD
     Route: 065
  12. ACETYLSALICYLIC ACID [Concomitant]
     Active Substance: ASPIRIN
     Indication: PROPHYLAXIS
     Dosage: 100 MG, QD
     Route: 065
  13. ETORICOXIB. [Concomitant]
     Active Substance: ETORICOXIB
     Indication: OSTEOARTHRITIS
     Dosage: 90 MG, QD
     Route: 065
  14. HYDROCORTISONE. [Concomitant]
     Active Substance: HYDROCORTISONE
     Indication: ADRENOCORTICOTROPIC HORMONE DEFICIENCY
     Dosage: 40 MG, QD
     Route: 065
     Dates: start: 201004, end: 20170510
  15. EXJADE [Suspect]
     Active Substance: DEFERASIROX
     Indication: PRIMARY MYELOFIBROSIS
     Dosage: 360 MG, BID (1-0-1)
     Route: 048
     Dates: start: 20170627

REACTIONS (9)
  - Eye irritation [Not Recovered/Not Resolved]
  - Eye pain [Not Recovered/Not Resolved]
  - Pain in extremity [Recovering/Resolving]
  - Pruritus [Recovered/Resolved]
  - Ligament rupture [Unknown]
  - Inappropriate schedule of product administration [Unknown]
  - Fall [Unknown]
  - Visual impairment [Not Recovered/Not Resolved]
  - Dyspnoea exertional [Not Recovered/Not Resolved]

NARRATIVE: CASE EVENT DATE: 20160513
